FAERS Safety Report 7170923-1 (Version None)
Quarter: 2010Q4

REPORT INFORMATION
  Report Type: 
  Country: None (occurrence: None)
  Receive Date: 20101217
  Receipt Date: 20101209
  Transmission Date: 20110411
  Serious: Yes (Hospitalization)
  Sender: FDA-Public Use
  Company Number: GB-ELI_LILLY_AND_COMPANY-GB201012002573

PATIENT
  Age: 57 Year
  Sex: Female

DRUGS (9)
  1. GEMCITABINE HCL [Suspect]
     Indication: LUNG NEOPLASM MALIGNANT
     Dosage: 1633.3 MG, DAILY (1/D)
     Route: 042
     Dates: start: 20100712, end: 20100903
  2. GEMCITABINE HCL [Suspect]
     Dosage: 1633.3 MG, UNKNOWN
     Route: 065
     Dates: start: 20100910, end: 20100910
  3. OTHER PHARMA COMPANY INV DRUG [Suspect]
     Indication: LUNG NEOPLASM MALIGNANT
     Dosage: UNK, UNKNOWN
     Route: 065
     Dates: start: 20100712, end: 20100913
  4. OTHER PHARMA COMPANY INV DRUG [Suspect]
     Dosage: UNK, UNKNOWN
     Route: 065
     Dates: start: 20101005
  5. CISPLATIN [Suspect]
     Indication: LUNG NEOPLASM MALIGNANT
     Dosage: UNK, UNKNOWN
     Route: 065
     Dates: start: 20100712
  6. DOXYCYCLINE [Concomitant]
     Dosage: 200 MG, UNK
     Dates: start: 20100808, end: 20100815
  7. ACETAMINOPHEN [Concomitant]
     Dosage: UNK, 500-1000MG
     Route: 048
     Dates: start: 20100511
  8. SALMETEROL [Concomitant]
     Dosage: 2 PUFFS, UNK
     Dates: start: 19900101
  9. SALBUTAMOL [Concomitant]
     Dosage: 2 - 4 PUFFS
     Dates: start: 19900101

REACTIONS (1)
  - HYPOMAGNESAEMIA [None]
